FAERS Safety Report 5144849-9 (Version None)
Quarter: 2006Q4

REPORT INFORMATION
  Report Type: 
  Country: None (occurrence: None)
  Receive Date: 20061107
  Receipt Date: 20061031
  Transmission Date: 20070319
  Serious: Yes (Other)
  Sender: FDA-Public Use
  Company Number: US-BAYER-200614512BCC

PATIENT
  Age: 66 Year
  Sex: Female
  Weight: 75 kg

DRUGS (2)
  1. PHILLIPS MILK OF MAGNESIA CHERRY [Suspect]
     Indication: CONSTIPATION
     Dosage: UNIT DOSE: 15 ML
     Route: 048
     Dates: start: 20061028, end: 20061030
  2. METAMUCIL [Concomitant]

REACTIONS (1)
  - RECTAL HAEMORRHAGE [None]
